FAERS Safety Report 4910478-2 (Version None)
Quarter: 2006Q1

REPORT INFORMATION
  Report Type: 
  Country: None (occurrence: None)
  Receive Date: 20060209
  Receipt Date: 20060131
  Transmission Date: 20060701
  Serious: Yes (Death)
  Sender: FDA-Public Use
  Company Number: 200610364GDS

PATIENT
  Age: 69 Year
  Sex: Male
  Weight: 65 kg

DRUGS (6)
  1. SORAFENIB [Suspect]
     Indication: METASTATIC RENAL CELL CARCINOMA
     Dosage: 400 MG, BID, ORAL
     Route: 048
     Dates: start: 20050202, end: 20051215
  2. ISOSORBID MONONITRANS [Concomitant]
  3. METOPROLOL [Concomitant]
  4. ACETYLSALICYLIC ACID SRT [Concomitant]
  5. KETOPROFEN [Concomitant]
  6. TRAMADOL [Concomitant]

REACTIONS (1)
  - RESPIRATORY FAILURE [None]
